FAERS Safety Report 9033088 (Version 2)
Quarter: 2013Q1

REPORT INFORMATION
  Report Type: Spontaneous
  Country: US (occurrence: US)
  Receive Date: 20130128
  Receipt Date: 20130226
  Transmission Date: 20140127
  Serious: No
  Sender: FDA-Public Use
  Company Number: US-PFIZER INC-2013031597

PATIENT
  Age: 64 Year
  Sex: Female
  Weight: 77 kg

DRUGS (3)
  1. ESTRING [Suspect]
     Indication: HORMONE REPLACEMENT THERAPY
     Dosage: UNK, EVERY 3 MONTHS
     Route: 067
  2. VICTOZA [Concomitant]
     Dosage: 1.8 MG, 1X/DAY
  3. HYDROCODONE [Concomitant]
     Dosage: UNK

REACTIONS (4)
  - Hot flush [Recovering/Resolving]
  - Mood swings [Not Recovered/Not Resolved]
  - Drug ineffective [Recovered/Resolved]
  - Vulvovaginal dryness [Recovering/Resolving]
